FAERS Safety Report 18311571 (Version 1)
Quarter: 2020Q3

REPORT INFORMATION
  Report Type: Spontaneous
  Country: US (occurrence: US)
  Receive Date: 20200924
  Receipt Date: 20200924
  Transmission Date: 20201103
  Serious: Yes (Disabling, Other)
  Sender: FDA-Public Use
  Company Number: None

PATIENT
  Sex: Female
  Weight: 81.45 kg

DRUGS (3)
  1. VENLAFAXINE HYDROCHLORIDE EXTENDED?RELEASE CAPSULES USP 150 MG [Suspect]
     Active Substance: VENLAFAXINE HYDROCHLORIDE
     Indication: MAJOR DEPRESSION
     Dosage: ?          QUANTITY:1 CAPSULE(S);?
     Route: 048
  2. VENLAFAXINE HYDROCHLORIDE EXTENDED?RELEASE CAPSULES USP 75 MG [Suspect]
     Active Substance: VENLAFAXINE HYDROCHLORIDE
     Indication: MAJOR DEPRESSION
     Dosage: ?          QUANTITY:1 CAPSULE(S);?
     Route: 048
  3. MELOXICAM. [Concomitant]
     Active Substance: MELOXICAM

REACTIONS (12)
  - Headache [None]
  - Body temperature increased [None]
  - Withdrawal syndrome [None]
  - Abnormal dreams [None]
  - Asthenia [None]
  - Agitation [None]
  - Hyperhidrosis [None]
  - Fatigue [None]
  - Dizziness [None]
  - Insomnia [None]
  - Anxiety [None]
  - Drug ineffective [None]
